FAERS Safety Report 9190754 (Version 2)
Quarter: 2013Q2

REPORT INFORMATION
  Report Type: Report from Study
  Country: JP (occurrence: JP)
  Receive Date: 20130326
  Receipt Date: 20130430
  Transmission Date: 20140414
  Serious: Yes (Other)
  Sender: FDA-Public Use
  Company Number: JP-ROCHE-1206721

PATIENT
  Sex: Male
  Weight: 64 kg

DRUGS (10)
  1. RANIBIZUMAB [Suspect]
     Indication: AGE-RELATED MACULAR DEGENERATION
     Route: 050
     Dates: start: 20090416
  2. RANIBIZUMAB [Suspect]
     Route: 050
     Dates: start: 20090514
  3. RANIBIZUMAB [Suspect]
     Route: 050
     Dates: start: 20090611
  4. BEVACIZUMAB [Suspect]
     Indication: AGE-RELATED MACULAR DEGENERATION
     Route: 065
  5. VISUDYNE [Concomitant]
     Indication: AGE-RELATED MACULAR DEGENERATION
     Dosage: 1 DF
     Route: 065
     Dates: start: 200504, end: 200511
  6. MOXIFLOXACIN HYDROCHLORIDE [Concomitant]
     Route: 065
     Dates: start: 200904, end: 200906
  7. CARNACULIN [Concomitant]
     Indication: AGE-RELATED MACULAR DEGENERATION
     Dosage: 3 DF
     Route: 065
  8. METHYCOBAL [Concomitant]
     Indication: AGE-RELATED MACULAR DEGENERATION
     Dosage: 3 DF
     Route: 065
  9. FLOMOX [Concomitant]
     Dosage: 3 DF
     Route: 065
     Dates: start: 20090416, end: 20090612
  10. DICLOD [Concomitant]
     Dosage: 3 DF
     Route: 065

REACTIONS (1)
  - Retinal haemorrhage [Unknown]
